FAERS Safety Report 24537678 (Version 10)
Quarter: 2025Q2

REPORT INFORMATION
  Report Type: Report from Study
  Country: US (occurrence: US)
  Receive Date: 20241023
  Receipt Date: 20250618
  Transmission Date: 20250716
  Serious: Yes (Hospitalization, Other)
  Sender: UCB
  Company Number: US-UCBSA-2024053422

PATIENT
  Sex: Male

DRUGS (29)
  1. FINTEPLA [Suspect]
     Active Substance: FENFLURAMINE
     Indication: Severe myoclonic epilepsy of infancy
     Dosage: 3.5 MILLILITER, 2X/DAY (BID)
     Dates: start: 20240830
  2. FINTEPLA [Suspect]
     Active Substance: FENFLURAMINE
     Dosage: 2 MILLILITER, 2X/DAY (BID)
     Route: 048
  3. FINTEPLA [Suspect]
     Active Substance: FENFLURAMINE
     Dosage: 4.4 MILLIGRAM, 2X/DAY (BID)
     Dates: start: 20241015
  4. FINTEPLA [Suspect]
     Active Substance: FENFLURAMINE
     Dosage: 2 MILLILITER, 2X/DAY (BID)
  5. FINTEPLA [Suspect]
     Active Substance: FENFLURAMINE
     Dosage: 2 MILLILITER, 2X/DAY (BID)
  6. FINTEPLA [Suspect]
     Active Substance: FENFLURAMINE
     Dosage: 8.8 MILLIGRAM, ONCE DAILY (QD)
  7. FINTEPLA [Suspect]
     Active Substance: FENFLURAMINE
     Dosage: 2 MILLILITER, 2X/DAY (BID)
  8. FINTEPLA [Suspect]
     Active Substance: FENFLURAMINE
     Dosage: 2 MILLILITER, 2X/DAY (BID)
  9. KEPPRA [Suspect]
     Active Substance: LEVETIRACETAM
     Indication: Seizure
     Dosage: 1000 MILLIGRAM, 2X/DAY (BID)
     Route: 048
     Dates: start: 20241015
  10. KLONOPIN [Concomitant]
     Active Substance: CLONAZEPAM
     Indication: Seizure
     Dosage: TAKE 10 ML (1MG TOTAL BY MOUTH 2 TIMES A DAY
     Route: 048
  11. KLONOPIN [Concomitant]
     Active Substance: CLONAZEPAM
  12. ONFI [Concomitant]
     Active Substance: CLOBAZAM
     Indication: Seizure
     Dosage: TAKE 8 ML (20 MG TOTAL) BY MOUTH 2 TIMES A DAY
     Route: 048
     Dates: start: 20241015
  13. ONFI [Concomitant]
     Active Substance: CLOBAZAM
  14. DEPAKOTE ER [Concomitant]
     Active Substance: DIVALPROEX SODIUM
     Indication: Seizure
     Dosage: 125 MILLIGRAM, 2X/DAY (BID)
     Route: 048
     Dates: start: 20241015
  15. VALTOCO [Concomitant]
     Active Substance: DIAZEPAM
     Indication: Seizure
  16. EPIDIOLEX [Concomitant]
     Active Substance: CANNABIDIOL
     Indication: Product used for unknown indication
  17. LACTULOSE [Concomitant]
     Active Substance: LACTULOSE
     Indication: Product used for unknown indication
  18. LEVOCARNITINE [Concomitant]
     Active Substance: LEVOCARNITINE
     Indication: Product used for unknown indication
  19. THIAMINE [Concomitant]
     Active Substance: THIAMINE
     Indication: Product used for unknown indication
  20. SENNA+ [Concomitant]
     Indication: Product used for unknown indication
  21. MIRALAX [Concomitant]
     Active Substance: POLYETHYLENE GLYCOL 3350
     Indication: Constipation
     Route: 048
  22. FERROUS SULFATE [Concomitant]
     Active Substance: FERROUS SULFATE
     Indication: Product used for unknown indication
  23. LANSOPRAZOLE [Concomitant]
     Active Substance: LANSOPRAZOLE
     Indication: Reflux gastritis
     Dosage: TAKE 5 ML (15 MG OF TOTAL) BY MOUTH 2 TIMES DAILY
     Route: 048
  24. PERIACTIN [Concomitant]
     Active Substance: CYPROHEPTADINE HYDROCHLORIDE
     Indication: Increased appetite
  25. ACETAMINOPHEN [Concomitant]
     Active Substance: ACETAMINOPHEN
     Indication: Pain
     Route: 048
  26. PYRIDOXINE [Concomitant]
     Active Substance: PYRIDOXINE
  27. VITAMINS [Concomitant]
     Active Substance: VITAMINS
     Indication: Product used for unknown indication
     Dosage: 1 MILLILITER, ONCE DAILY (QD)
     Route: 048
  28. CHOLECALCIFEROL [Concomitant]
     Active Substance: CHOLECALCIFEROL
     Indication: Product used for unknown indication
     Route: 048
  29. VALPROIC ACID [Concomitant]
     Active Substance: VALPROIC ACID
     Indication: Product used for unknown indication

REACTIONS (29)
  - Cardiac disorder [Not Recovered/Not Resolved]
  - Decreased appetite [Not Recovered/Not Resolved]
  - Weight decreased [Not Recovered/Not Resolved]
  - Ill-defined disorder [Not Recovered/Not Resolved]
  - Seizure [Recovered/Resolved]
  - Vomiting [Not Recovered/Not Resolved]
  - Failure to thrive [Recovered/Resolved]
  - Seizure cluster [Unknown]
  - Generalised tonic-clonic seizure [Unknown]
  - Osteonecrosis [Unknown]
  - Malnutrition [Unknown]
  - Intestinal obstruction [Unknown]
  - Weight gain poor [Not Recovered/Not Resolved]
  - Mental status changes [Unknown]
  - Hyperammonaemia [Unknown]
  - Hypotension [Unknown]
  - Somnolence [Unknown]
  - Rhinovirus infection [Unknown]
  - Constipation [Unknown]
  - Hypovitaminosis [Not Recovered/Not Resolved]
  - Iron deficiency [Not Recovered/Not Resolved]
  - Gastrooesophageal reflux disease [Not Recovered/Not Resolved]
  - Pyrexia [Not Recovered/Not Resolved]
  - Oral disorder [Not Recovered/Not Resolved]
  - Cardiac monitoring [Unknown]
  - Hyperhidrosis [Unknown]
  - Blood pressure increased [Unknown]
  - Palpitations [Unknown]
  - Gastroenteritis viral [Not Recovered/Not Resolved]

NARRATIVE: CASE EVENT DATE: 20240101
